FAERS Safety Report 6992540-6 (Version None)
Quarter: 2010Q3

REPORT INFORMATION
  Report Type: 
  Country: None (occurrence: None)
  Receive Date: 20100917
  Receipt Date: 20100908
  Transmission Date: 20110219
  Serious: Yes (Hospitalization, Other)
  Sender: FDA-Public Use
  Company Number: US-ROCHE-721899

PATIENT
  Age: 72 Year
  Sex: Female

DRUGS (2)
  1. ACTEMRA [Suspect]
     Indication: PRODUCT USED FOR UNKNOWN INDICATION
     Route: 065
     Dates: start: 20090101
  2. ACTONEL [Concomitant]

REACTIONS (4)
  - ANTI-PLATELET ANTIBODY [None]
  - PURPURA [None]
  - THROMBOCYTOPENIA [None]
  - TRANSFERRIN SATURATION DECREASED [None]
